FAERS Safety Report 7129394-3 (Version None)
Quarter: 2010Q4

REPORT INFORMATION
  Report Type: 
  Country: None (occurrence: None)
  Receive Date: 20101130
  Receipt Date: 20101118
  Transmission Date: 20110411
  Serious: No
  Sender: FDA-Public Use
  Company Number: US-PFIZER INC-2010152689

PATIENT
  Sex: Female
  Weight: 95 kg

DRUGS (4)
  1. PRISTIQ [Suspect]
     Indication: BIPOLAR DISORDER
     Dosage: 50 MG, 2X/DAY
     Route: 048
     Dates: start: 20100101, end: 20100901
  2. LEVOTHYROXINE [Concomitant]
     Dosage: UNK
  3. ABILIFY [Concomitant]
     Dosage: UNK
  4. METFORMIN [Concomitant]
     Indication: BLOOD GLUCOSE INCREASED
     Dosage: UNK

REACTIONS (2)
  - PAIN IN EXTREMITY [None]
  - SCREAMING [None]
